FAERS Safety Report 9949691 (Version 1)
Quarter: 2014Q1

REPORT INFORMATION
  Report Type: Report from Study
  Country: US (occurrence: US)
  Receive Date: 20140304
  Receipt Date: 20140304
  Transmission Date: 20141002
  Serious: No
  Sender: FDA-Public Use
  Company Number: US-ABBVIE-13P-163-1068501-00

PATIENT
  Age: 66 Year
  Sex: Female

DRUGS (17)
  1. HUMIRA [Suspect]
     Indication: RHEUMATOID ARTHRITIS
     Route: 058
     Dates: start: 20130321
  2. HYDROCODONE [Concomitant]
     Indication: PRODUCT USED FOR UNKNOWN INDICATION
     Dosage: 10/500 MG
  3. GLIMEPIRIDE [Concomitant]
     Indication: DIABETES MELLITUS
  4. TRAMADOL HCL [Concomitant]
     Indication: PRODUCT USED FOR UNKNOWN INDICATION
  5. OMEPRAZOLE [Concomitant]
     Indication: GASTROOESOPHAGEAL REFLUX DISEASE
  6. PREDNISONE [Concomitant]
     Indication: PRODUCT USED FOR UNKNOWN INDICATION
  7. GABAPENTIN [Concomitant]
     Indication: RHEUMATOID ARTHRITIS
     Dosage: AT BEDTIME
  8. FLUOXETINE HCL [Concomitant]
     Indication: DEPRESSION
  9. CAPTOPRIL [Concomitant]
     Indication: HYPERTENSION
  10. FOLIC ACID [Concomitant]
     Indication: PRODUCT USED FOR UNKNOWN INDICATION
  11. FUROSEMIDE [Concomitant]
     Indication: FLUID RETENTION
  12. METHOTREXATE [Concomitant]
     Indication: PRODUCT USED FOR UNKNOWN INDICATION
  13. LOPERAMIDE [Concomitant]
     Indication: DIARRHOEA
  14. METOLAZONE [Concomitant]
     Indication: FLUID RETENTION
  15. METOCLOPRAMIDE [Concomitant]
     Indication: NAUSEA
  16. METOCLOPRAMIDE [Concomitant]
     Indication: VOMITING
  17. POTASSIUM CHLORIDE [Concomitant]
     Indication: BLOOD POTASSIUM DECREASED

REACTIONS (3)
  - Device malfunction [Unknown]
  - Incorrect dose administered [Unknown]
  - Arthralgia [Unknown]
